FAERS Safety Report 14843653 (Version 1)
Quarter: 2018Q2

REPORT INFORMATION
  Report Type: Spontaneous
  Country: US (occurrence: US)
  Receive Date: 20180503
  Receipt Date: 20180503
  Transmission Date: 20180711
  Serious: Yes (Hospitalization)
  Sender: FDA-Public Use
  Company Number: US-PFIZER INC-2018177444

PATIENT
  Age: 64 Year
  Sex: Male

DRUGS (3)
  1. SUTENT [Suspect]
     Active Substance: SUNITINIB MALATE
     Dosage: 25 MG, 2 WEEKS ON AND 1 OFF
     Dates: start: 20180413
  2. AVASTIN [Concomitant]
     Active Substance: BEVACIZUMAB
     Dosage: UNK
     Route: 042
     Dates: start: 201802, end: 201802
  3. SUTENT [Suspect]
     Active Substance: SUNITINIB MALATE
     Indication: BRAIN NEOPLASM
     Dosage: 50 MG TABLET DAILY FOR 2 WEEKS THEN ONE WEEK OFF
     Route: 048
     Dates: start: 201802

REACTIONS (3)
  - Malaise [Recovered/Resolved]
  - Product use in unapproved indication [Unknown]
  - Bone pain [Unknown]

NARRATIVE: CASE EVENT DATE: 201802
